FAERS Safety Report 7271201-2 (Version None)
Quarter: 2011Q1

REPORT INFORMATION
  Report Type: 
  Country: None (occurrence: None)
  Receive Date: 20110202
  Receipt Date: 20110125
  Transmission Date: 20110831
  Serious: Yes (Hospitalization, Other)
  Sender: FDA-Public Use
  Company Number: US-PFIZER INC-2010063544

PATIENT
  Sex: Female
  Weight: 57 kg

DRUGS (2)
  1. DILANTIN [Suspect]
     Indication: CONVULSION
     Dosage: 100 MG, UNK
     Dates: start: 19980817, end: 19980101
  2. PHENOBARBITAL [Concomitant]
     Indication: CONVULSION
     Dosage: 30 MG, 2X/DAY
     Dates: start: 19981006

REACTIONS (1)
  - STEVENS-JOHNSON SYNDROME [None]
